FAERS Safety Report 5330656-0 (Version None)
Quarter: 2007Q2

REPORT INFORMATION
  Report Type: 
  Country: None (occurrence: None)
  Receive Date: 20070518
  Receipt Date: 20070518
  Transmission Date: 20071010
  Serious: Yes (Hospitalization)
  Sender: FDA-Public Use
  Company Number: None

PATIENT
  Sex: Female
  Weight: 115 kg

DRUGS (1)
  1. WINRHO [Suspect]
     Indication: IDIOPATHIC THROMBOCYTOPENIC PURPURA
     Dates: start: 20070115, end: 20070115

REACTIONS (3)
  - HAEMOLYTIC URAEMIC SYNDROME [None]
  - INFLUENZA LIKE ILLNESS [None]
  - INFUSION RELATED REACTION [None]
